FAERS Safety Report 24376465 (Version 1)
Quarter: 2024Q3

REPORT INFORMATION
  Report Type: Spontaneous
  Country: US (occurrence: None)
  Receive Date: 20240926
  Receipt Date: 20240926
  Transmission Date: 20241017
  Serious: Yes (Hospitalization)
  Sender: Public
  Company Number: None

PATIENT
  Age: 76 Year
  Sex: Male
  Weight: 107 kg

DRUGS (3)
  1. EMPAGLIFLOZIN [Suspect]
     Active Substance: EMPAGLIFLOZIN
     Indication: Chronic kidney disease
     Dosage: 12.50 MG DAILY ORAL
     Route: 048
     Dates: start: 20230504, end: 20230610
  2. LISINOPRIL [Suspect]
     Active Substance: LISINOPRIL
  3. FUROSEMIDE [Suspect]
     Active Substance: FUROSEMIDE

REACTIONS (6)
  - Blood creatinine increased [None]
  - Dehydration [None]
  - Dizziness [None]
  - Acute kidney injury [None]
  - Acidosis [None]
  - Hypercalcaemia [None]

NARRATIVE: CASE EVENT DATE: 20230610
